FAERS Safety Report 6664655-3 (Version None)
Quarter: 2010Q1

REPORT INFORMATION
  Report Type: 
  Country: None (occurrence: None)
  Receive Date: 20100330
  Receipt Date: 20100316
  Transmission Date: 20100710
  Serious: Yes (Other)
  Sender: FDA-Public Use
  Company Number: 2009228917

PATIENT
  Sex: Male
  Weight: 2.6 kg

DRUGS (6)
  1. FRAGMIN [Suspect]
     Dosage: 5000 IU, 1X/DAY, TRANSPLACENTAL
     Route: 064
     Dates: start: 20090401
  2. PREDNISOLONE [Concomitant]
  3. HYDROXYCHLOROQUINE SULFATE [Concomitant]
  4. ASPIRIN [Concomitant]
  5. NYSTATIN [Concomitant]
  6. FOLIC ACID [Concomitant]

REACTIONS (3)
  - CONGENITAL INFECTION [None]
  - MATERNAL DRUGS AFFECTING FOETUS [None]
  - SMALL FOR DATES BABY [None]
